FAERS Safety Report 23483326 (Version 1)
Quarter: 2024Q1

REPORT INFORMATION
  Report Type: Spontaneous
  Country: US (occurrence: US)
  Receive Date: 20240205
  Receipt Date: 20240205
  Transmission Date: 20240410
  Serious: Yes (Hospitalization, Other)
  Sender: FDA-Public Use
  Company Number: US-PFIZER INC-202400031487

PATIENT
  Age: 79 Year
  Sex: Male
  Weight: 68.95 kg

DRUGS (4)
  1. VYNDAMAX [Suspect]
     Active Substance: TAFAMIDIS
     Indication: Amyloidosis
     Dosage: 61 MG, 1X/DAY
     Dates: start: 202108
  2. ONPATTRO [Concomitant]
     Active Substance: PATISIRAN SODIUM
     Indication: Neuropathy peripheral
     Dosage: INFUSION EVERY 3 WEEKS
  3. ONPATTRO [Concomitant]
     Active Substance: PATISIRAN SODIUM
     Indication: Amyloidosis
  4. JARDIANCE [Concomitant]
     Active Substance: EMPAGLIFLOZIN
     Dosage: 10 MG, DAILY

REACTIONS (1)
  - Cardiac failure congestive [Unknown]
